FAERS Safety Report 7672179-X (Version None)
Quarter: 2011Q3

REPORT INFORMATION
  Report Type: 
  Country: None (occurrence: None)
  Receive Date: 20110809
  Receipt Date: 20110804
  Transmission Date: 20111222
  Serious: Yes (Life-Threatening, Other)
  Sender: FDA-Public Use
  Company Number: PHHY2011CA70702

PATIENT
  Sex: Female

DRUGS (1)
  1. ZOLEDRONOC ACID [Suspect]
     Route: 042
     Dates: start: 20100826

REACTIONS (7)
  - SKIN DISCOLOURATION [None]
  - PYREXIA [None]
  - PAIN [None]
  - LOSS OF CONSCIOUSNESS [None]
  - MALAISE [None]
  - TREMOR [None]
  - FEELING ABNORMAL [None]
